FAERS Safety Report 9796785 (Version 1)
Quarter: 2014Q1

REPORT INFORMATION
  Report Type: Spontaneous
  Country: JP (occurrence: JP)
  Receive Date: 20140103
  Receipt Date: 20140103
  Transmission Date: 20141002
  Serious: Yes (Hospitalization)
  Sender: FDA-Public Use
  Company Number: JP-OTSUKA-JP-2013-16276

PATIENT
  Age: 62 Year
  Sex: Female

DRUGS (5)
  1. SAMSCA [Suspect]
     Indication: BILIARY CIRRHOSIS PRIMARY
     Dosage: 7.5 MG MILLIGRAM(S), QD
     Route: 048
     Dates: start: 20131016, end: 20131019
  2. SAMSCA [Suspect]
     Dosage: 7.5 MG MILLIGRAM(S), ONCE IN  THREE DAYS, FOR THREE TIMES
     Route: 048
     Dates: start: 20131022, end: 20131028
  3. ALDACTONE A [Concomitant]
     Dosage: 25 MG MILLIGRAM(S), QD
     Route: 048
  4. EUTENSIN [Concomitant]
     Dosage: 40 MG MILLIGRAM(S), QD
     Route: 048
  5. FUROSEMIDE [Concomitant]
     Dosage: 20 MG MILLIGRAM(S), QD
     Route: 048

REACTIONS (1)
  - Hepatitis acute [Recovering/Resolving]
